FAERS Safety Report 7734724-5 (Version None)
Quarter: 2011Q3

REPORT INFORMATION
  Report Type: 
  Country: None (occurrence: None)
  Receive Date: 20110907
  Receipt Date: 20110829
  Transmission Date: 20111222
  Serious: Yes (Death, Life-Threatening, Hospitalization)
  Sender: FDA-Public Use
  Company Number: US-ACTELION-A-US2011-52590

PATIENT

DRUGS (2)
  1. VENTAVIS [Suspect]
     Indication: PULMONARY HYPERTENSION
     Dosage: UNK ?G, UNK
     Route: 055
     Dates: start: 20110801
  2. REVATIO [Concomitant]

REACTIONS (3)
  - NAUSEA [None]
  - CARDIAC ARREST [None]
  - DYSPNOEA [None]
